FAERS Safety Report 7479702-9 (Version None)
Quarter: 2011Q2

REPORT INFORMATION
  Report Type: 
  Country: None (occurrence: None)
  Receive Date: 20110513
  Receipt Date: 20110405
  Transmission Date: 20111010
  Serious: Yes (Hospitalization, Other)
  Sender: FDA-Public Use
  Company Number: US-BAYER-201039810NA

PATIENT
  Age: 20 Year
  Sex: Female
  Weight: 95.238 kg

DRUGS (4)
  1. YAZ [Suspect]
     Indication: DYSMENORRHOEA
     Dosage: UNK
     Dates: start: 20060801, end: 20090109
  2. TOPAMAX [Concomitant]
  3. YASMIN [Suspect]
     Indication: DYSMENORRHOEA
     Dosage: UNK
     Dates: start: 20060801, end: 20090109
  4. PAXIL [Concomitant]
     Indication: ANXIETY

REACTIONS (5)
  - GALLBLADDER DISORDER [None]
  - BILIARY DYSKINESIA [None]
  - ABDOMINAL PAIN [None]
  - HYPERSENSITIVITY [None]
  - WEIGHT INCREASED [None]
